FAERS Safety Report 9295633 (Version 1)
Quarter: 2013Q1

REPORT INFORMATION
  Report Type: Spontaneous
  Country: US (occurrence: None)
  Receive Date: 20130103
  Receipt Date: 20130103
  Transmission Date: 20140127
  Serious: Yes (Hospitalization)
  Sender: FDA-Public Use
  Company Number: DSA_55199_2012

PATIENT
  Sex: Female
  Weight: 60.33 kg

DRUGS (4)
  1. XENAZINE [Suspect]
     Indication: HUNTINGTON^S DISEASE
     Route: 048
     Dates: start: 20120201
  2. ALPRAZOLAM [Concomitant]
  3. CELEXA [Concomitant]
  4. LORTAB [Concomitant]

REACTIONS (5)
  - Hallucination [None]
  - Insomnia [None]
  - Nausea [None]
  - Headache [None]
  - Feeling abnormal [None]
